FAERS Safety Report 8456520-6 (Version None)
Quarter: 2012Q2

REPORT INFORMATION
  Report Type: 
  Country: None (occurrence: None)
  Receive Date: 20120621
  Receipt Date: 20120612
  Transmission Date: 20120825
  Serious: Yes (Hospitalization)
  Sender: FDA-Public Use
  Company Number: IT-ASTRAZENECA-2012SE39342

PATIENT
  Age: 25716 Day
  Sex: Male

DRUGS (16)
  1. ALFUZOSIN HYDROCHLORIDE [Concomitant]
  2. GLICOREST [Concomitant]
     Dosage: 5 MG + 500 MG, 3 DOSAGE FORM WITH UNKNOWN FREQUENCY
     Route: 048
  3. MERREM [Suspect]
     Indication: ENCEPHALITIS
     Route: 042
     Dates: start: 20120529, end: 20120531
  4. KEPPRA [Concomitant]
     Indication: CONVULSION
     Route: 048
     Dates: start: 20120519
  5. PROSTIGMINA [Concomitant]
     Dosage: 0.5 MG/ML INJECTABLE SOLUTION
  6. ACYCLOVIR [Concomitant]
     Route: 048
     Dates: start: 20120516
  7. OPTIRAY 160 [Concomitant]
     Indication: COMPUTERISED TOMOGRAM
     Dosage: 350 MG/ML INJECTABLE SOLUTION, 130 ML WITH UNKNOWN FREQUENCY
     Route: 042
  8. AMPICILLIN [Suspect]
     Indication: ENCEPHALITIS
     Route: 042
     Dates: start: 20120519, end: 20120529
  9. GLUCONATE CALCIUM [Concomitant]
  10. OMEPRAZOLE [Concomitant]
     Route: 048
  11. PHENYTOIN SODIUM [Suspect]
     Indication: CONVULSION
     Dosage: 250 MG / 5 ML, 4 DOASGE FORM DAILY
     Route: 042
     Dates: start: 20120516, end: 20120529
  12. DECADRON [Concomitant]
     Route: 048
  13. ASPIRIN [Concomitant]
     Route: 048
  14. ENOXAPARIN SODIUM [Concomitant]
     Dosage: 4000 IU AXA INJECTACLE SOLUTION, 1 DOSAGE FORM
     Route: 058
  15. LANTUS [Concomitant]
     Dosage: 100 U/ML INJECTABLE SOLUTION
     Route: 058
  16. LASIX [Concomitant]
     Dosage: 20MG/2ML, 3 DOSAGE FORM WITH UNKNOWN FREQUENCY
     Route: 042

REACTIONS (1)
  - RASH MACULO-PAPULAR [None]
